FAERS Safety Report 17680636 (Version 1)
Quarter: 2020Q2

REPORT INFORMATION
  Report Type: Spontaneous
  Country: HR (occurrence: HR)
  Receive Date: 20200417
  Receipt Date: 20200417
  Transmission Date: 20200714
  Serious: Yes (Other)
  Sender: FDA-Public Use
  Company Number: NVSC2020HR102013

PATIENT
  Age: 3 Year
  Sex: Female
  Weight: 13 kg

DRUGS (1)
  1. MAXITROL [Suspect]
     Active Substance: DEXAMETHASONE\NEOMYCIN SULFATE\POLYMYXIN B SULFATE
     Indication: CATARACT CONGENITAL
     Dosage: 6 GTT, QD
     Route: 047

REACTIONS (3)
  - Weight gain poor [Recovered/Resolved]
  - Cushing^s syndrome [Recovered/Resolved]
  - Growth retardation [Recovered/Resolved]

NARRATIVE: CASE EVENT DATE: 2018
